FAERS Safety Report 9015859 (Version 4)
Quarter: 2013Q1

REPORT INFORMATION
  Report Type: Report from Study
  Country: GB (occurrence: GB)
  Receive Date: 20130116
  Receipt Date: 20130221
  Transmission Date: 20140127
  Serious: Yes (Life-Threatening, Hospitalization)
  Sender: FDA-Public Use
  Company Number: GB-PFIZER INC-2013014610

PATIENT
  Age: 62 Year
  Sex: Male
  Weight: 61 kg

DRUGS (4)
  1. AXITINIB [Suspect]
     Indication: LEIOMYOSARCOMA METASTATIC
     Dosage: 3 MG, 4 CYCLES
     Route: 048
     Dates: start: 20120921, end: 20121227
  2. CYCLIZINE [Concomitant]
     Indication: NAUSEA
     Dosage: 50 MG, 3X/DAY
     Route: 048
     Dates: start: 20121004
  3. RANITIDINE [Concomitant]
     Indication: DYSPEPSIA
     Dosage: 150 MG, 2X/DAY
     Route: 048
     Dates: start: 20120928
  4. FLIXONASE [Concomitant]
     Indication: NASAL POLYPS
     Dosage: 2 UG, 1X/DAY
     Route: 045
     Dates: start: 2011

REACTIONS (1)
  - Atrial fibrillation [Recovered/Resolved with Sequelae]
